FAERS Safety Report 7978083-1 (Version None)
Quarter: 2011Q4

REPORT INFORMATION
  Report Type: 
  Country: None (occurrence: None)
  Receive Date: 20111214
  Receipt Date: 20111203
  Transmission Date: 20120403
  Serious: Yes (Hospitalization)
  Sender: FDA-Public Use
  Company Number: US-PAR PHARMACEUTICAL, INC-2011SCPR003473

PATIENT

DRUGS (8)
  1. DIAZEPAM [Suspect]
     Indication: OVERDOSE
     Dosage: 2 MG/KG (140 MG), SINGLE
     Route: 040
  2. DIAZEPAM [Interacting]
     Dosage: 5 MG/ HR,
  3. SODIUM BICARBONATE [Concomitant]
     Indication: ELECTROCARDIOGRAM ABNORMAL
     Dosage: UNK, UNKNOWN
     Route: 065
  4. EPINEPHRINE [Concomitant]
     Indication: HYPOTENSION
     Dosage: UNK, UNKNOWN
     Route: 041
  5. POTASSIUM CHLORIDE [Concomitant]
     Indication: HYPOKALAEMIA
     Dosage: 199 MEQ, UNKNOWN
  6. POTASSIUM PHOSPHATES [Concomitant]
     Indication: BLOOD PHOSPHORUS ABNORMAL
     Dosage: 21 MMOL, UNKNOWN
     Route: 065
  7. MAGNESIUM SULFATE [Concomitant]
     Indication: ELECTROCARDIOGRAM ABNORMAL
     Dosage: UNK, UNKNOWN
     Route: 065
  8. HYDROXYCHLOROQUINE SULFATE [Interacting]
     Indication: PRODUCT USED FOR UNKNOWN INDICATION
     Dosage: 18 G, UNKNOWN
     Route: 048

REACTIONS (3)
  - POOR QUALITY SLEEP [None]
  - DRUG INTERACTION [None]
  - DRUG RESISTANCE [None]
